FAERS Safety Report 4470413-0 (Version None)
Quarter: 2004Q3

REPORT INFORMATION
  Report Type: 
  Country: None (occurrence: None)
  Receive Date: 20040910
  Receipt Date: 20040524
  Transmission Date: 20050211
  Serious: No
  Sender: FDA-Public Use
  Company Number: M04-341-165

PATIENT
  Sex: Female

DRUGS (1)
  1. VELCADE [Suspect]
     Indication: MULTIPLE MYELOMA

REACTIONS (8)
  - ABDOMINAL PAIN UPPER [None]
  - BONE PAIN [None]
  - DIARRHOEA [None]
  - DIZZINESS [None]
  - GASTROINTESTINAL PAIN [None]
  - HEADACHE [None]
  - INSOMNIA [None]
  - NAUSEA [None]
